FAERS Safety Report 11714258 (Version 2)
Quarter: 2015Q4

REPORT INFORMATION
  Report Type: Report from Study
  Country: US (occurrence: US)
  Receive Date: 20151109
  Receipt Date: 20151112
  Transmission Date: 20160304
  Serious: Yes (Hospitalization)
  Sender: FDA-Public Use
  Company Number: US-BIOGENIDEC-2015BI146297

PATIENT
  Age: 54 Year
  Sex: Female

DRUGS (2)
  1. CYMBALTA [Concomitant]
     Active Substance: DULOXETINE HYDROCHLORIDE
     Route: 048
  2. TECFIDERA [Suspect]
     Active Substance: DIMETHYL FUMARATE
     Indication: MULTIPLE SCLEROSIS
     Route: 048
     Dates: start: 2013, end: 2015

REACTIONS (15)
  - Nasopharyngitis [Not Recovered/Not Resolved]
  - Drug intolerance [Unknown]
  - Alopecia [Unknown]
  - Diarrhoea [Not Recovered/Not Resolved]
  - Burning sensation [Recovered/Resolved]
  - Cystitis interstitial [Not Recovered/Not Resolved]
  - Cough [Unknown]
  - Hypotension [Recovered/Resolved]
  - Blood alkaline phosphatase increased [Not Recovered/Not Resolved]
  - Aspartate aminotransferase increased [Not Recovered/Not Resolved]
  - Oropharyngeal pain [Unknown]
  - Electrolyte depletion [Recovered/Resolved]
  - Hot flush [Recovered/Resolved]
  - Alanine aminotransferase increased [Not Recovered/Not Resolved]
  - Headache [Recovered/Resolved]

NARRATIVE: CASE EVENT DATE: 2015
